FAERS Safety Report 10245341 (Version 1)
Quarter: 2014Q2

REPORT INFORMATION
  Report Type: Spontaneous
  Country: BR (occurrence: BR)
  Receive Date: 20140618
  Receipt Date: 20140618
  Transmission Date: 20141212
  Serious: Yes (Disabling)
  Sender: FDA-Public Use
  Company Number: BR-ABBVIE-14P-020-1249401-00

PATIENT
  Sex: Male

DRUGS (4)
  1. DEPAKOTE [Suspect]
     Indication: CONVULSION
     Dosage: DAILY DOSE : 750 MILLIGRAMS; AT BREAKFAST, LUNCH AND DINNER
     Route: 048
  2. DEPAKOTE [Suspect]
     Dosage: UNSPECIFIED DOSES THAT WERE LARGER AND MORE FREQUENT
  3. TRILEPTAL [Concomitant]
     Indication: CONVULSION
     Dosage: DAILY DOSE : 1800 MILLIGRAMS; AT BREAKFAST, LUNCH AND DINNER
     Route: 048
  4. CARVEDILOL [Concomitant]
     Indication: CARDIAC DISORDER
     Dosage: DAILY DOSE : 18.75 MILLIGRAMS; AT BREAKFAST, LUNCH AND DINNER
     Route: 048

REACTIONS (7)
  - Blindness [Not Recovered/Not Resolved]
  - Cardiac valve disease [Unknown]
  - Hepatic function abnormal [Not Recovered/Not Resolved]
  - Acne [Not Recovered/Not Resolved]
  - Hair disorder [Not Recovered/Not Resolved]
  - Alopecia [Not Recovered/Not Resolved]
  - Contusion [Not Recovered/Not Resolved]
